FAERS Safety Report 10221622 (Version 2)
Quarter: 2014Q2

REPORT INFORMATION
  Report Type: Spontaneous
  Country: US (occurrence: US)
  Receive Date: 20140606
  Receipt Date: 20140606
  Transmission Date: 20141212
  Serious: Yes (Hospitalization, Other)
  Sender: FDA-Public Use
  Company Number: US-GILEAD-2014-0095768

PATIENT
  Age: 49 Year
  Sex: Female
  Weight: 68.27 kg

DRUGS (6)
  1. LETAIRIS [Suspect]
     Indication: PULMONARY ARTERIAL HYPERTENSION
     Dosage: 10 MG, QD
     Route: 065
     Dates: start: 20131105
  2. ADCIRCA [Concomitant]
     Route: 048
  3. ADVAIR [Concomitant]
     Route: 055
  4. ASA [Concomitant]
     Dosage: 81 MG, UNK
     Route: 048
  5. PLAVIX [Concomitant]
     Dosage: 75 MG, UNK
     Route: 048
  6. CRESTOR [Concomitant]
     Dosage: 10 MG, UNK
     Route: 048

REACTIONS (3)
  - Pulmonary arterial hypertension [Unknown]
  - Renal failure [Unknown]
  - Device issue [Recovered/Resolved]
